FAERS Safety Report 25178151 (Version 1)
Quarter: 2025Q2

REPORT INFORMATION
  Report Type: Spontaneous
  Country: US (occurrence: US)
  Receive Date: 20250409
  Receipt Date: 20250409
  Transmission Date: 20250717
  Serious: Yes (Life-Threatening, Hospitalization)
  Sender: MYLAN
  Company Number: US-MYLANLABS-2025M1030526

PATIENT
  Sex: Female

DRUGS (4)
  1. EPINEPHRINE [Suspect]
     Active Substance: EPINEPHRINE
     Indication: Left ventricular dysfunction
  2. MILRINONE [Suspect]
     Active Substance: MILRINONE
     Indication: Left ventricular dysfunction
  3. DOPAMINE [Suspect]
     Active Substance: DOPAMINE HYDROCHLORIDE
     Indication: Left ventricular dysfunction
  4. CALCIUM [Suspect]
     Active Substance: CALCIUM
     Indication: Left ventricular dysfunction

REACTIONS (1)
  - Drug ineffective [Unknown]
